FAERS Safety Report 12079253 (Version 1)
Quarter: 2016Q1

REPORT INFORMATION
  Report Type: Spontaneous
  Country: US (occurrence: US)
  Receive Date: 20160216
  Receipt Date: 20160216
  Transmission Date: 20160526
  Serious: No
  Sender: FDA-Public Use
  Company Number: US-BAYER-2016-023439

PATIENT
  Age: 80 Year
  Sex: Female
  Weight: 70.3 kg

DRUGS (2)
  1. ALEVE [Suspect]
     Active Substance: NAPROXEN SODIUM
     Indication: ARTHRITIS
  2. ALEVE [Suspect]
     Active Substance: NAPROXEN SODIUM
     Indication: ARTHRALGIA
     Dosage: 1 DF, PRN (2-3 TIMES PER WEEK)
     Route: 048
     Dates: start: 2013

REACTIONS (4)
  - Product use issue [None]
  - Product use issue [None]
  - Drug effect incomplete [None]
  - Gait disturbance [None]

NARRATIVE: CASE EVENT DATE: 2013
